FAERS Safety Report 8612581 (Version 3)
Quarter: 2014Q2

REPORT INFORMATION
  Report Type: Report from Study
  Country: JP (occurrence: JP)
  Receive Date: 20120613
  Receipt Date: 20140603
  Transmission Date: 20141212
  Serious: Yes (Disabling)
  Sender: FDA-Public Use
  Company Number: JP-GLAXOSMITHKLINE-B0807035A

PATIENT
  Age: 70 Year
  Sex: Female
  Weight: 50 kg

DRUGS (9)
  1. REVOLADE [Suspect]
     Indication: IMMUNE THROMBOCYTOPENIC PURPURA
     Dosage: 12.5MG PER DAY
     Route: 048
     Dates: start: 20120524, end: 20120704
  2. PREDONINE [Concomitant]
     Indication: IMMUNE THROMBOCYTOPENIC PURPURA
     Route: 048
  3. MUCOSTA [Concomitant]
     Indication: PROPHYLAXIS
     Dosage: 100MG THREE TIMES PER DAY
     Route: 048
  4. PARIET [Concomitant]
     Indication: PROPHYLAXIS
     Dosage: 10MG PER DAY
     Route: 048
  5. ALFAROL [Concomitant]
     Indication: PROPHYLAXIS
     Dosage: 1MCG PER DAY
     Route: 048
  6. MOHRUS TAPE [Concomitant]
     Route: 062
  7. NORVASC [Concomitant]
     Route: 048
     Dates: start: 20120607
  8. TAKEPRON [Concomitant]
     Route: 048
     Dates: start: 20120608
  9. DIOVAN [Concomitant]
     Route: 048
     Dates: start: 20120618

REACTIONS (1)
  - Putamen haemorrhage [Recovered/Resolved with Sequelae]
